FAERS Safety Report 10354406 (Version 1)
Quarter: 2014Q3

REPORT INFORMATION
  Report Type: Spontaneous
  Country: AU (occurrence: AU)
  Receive Date: 20140731
  Receipt Date: 20140731
  Transmission Date: 20150326
  Serious: Yes (Hospitalization)
  Sender: FDA-Public Use
  Company Number: AU-ASTRAZENECA-2014SE54050

PATIENT
  Age: 25379 Day
  Sex: Male
  Weight: 90 kg

DRUGS (7)
  1. MINIPRESS [Suspect]
     Active Substance: PRAZOSIN HYDROCHLORIDE
     Route: 065
  2. PHYSIOTENS [Suspect]
     Active Substance: MOXONIDINE
     Route: 065
     Dates: start: 20140409, end: 20140707
  3. CRESTOR [Suspect]
     Active Substance: ROSUVASTATIN CALCIUM
     Route: 048
  4. PERINDO [Suspect]
     Active Substance: PERINDOPRIL
     Route: 065
     Dates: start: 20130308, end: 20140707
  5. PROGOUT [Suspect]
     Active Substance: ALLOPURINOL
     Route: 065
  6. RABZOLE [Suspect]
     Active Substance: RABEPRAZOLE
     Route: 065
  7. OLMETEC [Suspect]
     Active Substance: OLMESARTAN MEDOXOMIL
     Route: 065

REACTIONS (3)
  - Dizziness [Recovered/Resolved]
  - Hypotension [Recovered/Resolved]
  - Palpitations [Recovered/Resolved]

NARRATIVE: CASE EVENT DATE: 20140429
